FAERS Safety Report 6426938-1 (Version None)
Quarter: 2009Q4

REPORT INFORMATION
  Report Type: 
  Country: None (occurrence: None)
  Receive Date: 20091104
  Receipt Date: 20091028
  Transmission Date: 20100525
  Serious: Yes (Disabling)
  Sender: FDA-Public Use
  Company Number: JP-ABBOTT-09P-087-0605474-00

PATIENT
  Sex: Male
  Weight: 63.8 kg

DRUGS (8)
  1. CEFDINIR [Suspect]
     Indication: DRUG USE FOR UNKNOWN INDICATION
     Route: 048
     Dates: start: 20090901, end: 20090907
  2. AMLODIPINE [Concomitant]
     Indication: DRUG USE FOR UNKNOWN INDICATION
  3. HYTRACIN [Concomitant]
     Indication: DRUG USE FOR UNKNOWN INDICATION
  4. OLMETEC [Concomitant]
     Indication: DRUG USE FOR UNKNOWN INDICATION
  5. FLUITRAN [Concomitant]
     Indication: DRUG USE FOR UNKNOWN INDICATION
  6. LOXONIN [Concomitant]
     Indication: DRUG USE FOR UNKNOWN INDICATION
     Dates: start: 20090827, end: 20090903
  7. MUCOSTA [Concomitant]
     Indication: DRUG USE FOR UNKNOWN INDICATION
     Dates: start: 20090827, end: 20090903
  8. ISODINE [Concomitant]
     Indication: DRUG USE FOR UNKNOWN INDICATION
     Dates: start: 20090828

REACTIONS (1)
  - DYSURIA [None]
